FAERS Safety Report 10359321 (Version 1)
Quarter: 2014Q3

REPORT INFORMATION
  Report Type: Spontaneous
  Country: US (occurrence: US)
  Receive Date: 20140804
  Receipt Date: 20140804
  Transmission Date: 20150326
  Serious: Yes (Other)
  Sender: FDA-Public Use
  Company Number: CHPA2014US010153

PATIENT
  Age: 60 Year
  Sex: Female

DRUGS (4)
  1. IBUPROFEN. [Suspect]
     Active Substance: IBUPROFEN
     Indication: FIBROMYALGIA
     Dosage: UNK
  2. FLOMAX [Concomitant]
     Active Substance: TAMSULOSIN HYDROCHLORIDE
     Indication: BLADDER DISORDER
     Dosage: UNK
  3. BENEFIBER [Suspect]
     Active Substance: STARCH, WHEAT
     Indication: IRRITABLE BOWEL SYNDROME
     Dosage: UNK
  4. BENEFIBER [Suspect]
     Active Substance: STARCH, WHEAT
     Indication: OFF LABEL USE
     Dosage: 2 TSP, 2-3 TIMES A DAY
     Route: 048

REACTIONS (7)
  - Inappropriate schedule of drug administration [Unknown]
  - Migraine [Unknown]
  - Constipation [Unknown]
  - Therapeutic response changed [Unknown]
  - Cartilage injury [Recovered/Resolved]
  - Irritable bowel syndrome [Not Recovered/Not Resolved]
  - Intervertebral disc degeneration [Unknown]

NARRATIVE: CASE EVENT DATE: 2009
